FAERS Safety Report 9372156 (Version 1)
Quarter: 2013Q2

REPORT INFORMATION
  Report Type: Spontaneous
  Country: FR (occurrence: FR)
  Receive Date: 20130627
  Receipt Date: 20130627
  Transmission Date: 20140414
  Serious: Yes (Hospitalization)
  Sender: FDA-Public Use
  Company Number: FR-JNJFOC-20130615654

PATIENT
  Age: 40 Year
  Sex: Male

DRUGS (11)
  1. SIMPONI [Suspect]
     Indication: ANKYLOSING SPONDYLITIS
     Dosage: 0.0333 ??1 DF (DOSE FACTOR)
     Route: 058
     Dates: start: 20130115
  2. DOLIPRANE [Concomitant]
     Route: 065
  3. CORTANCYL [Concomitant]
     Route: 065
  4. INEXIUM [Concomitant]
     Route: 065
  5. ACUPAN [Concomitant]
     Route: 065
  6. SEROPLEX [Concomitant]
     Route: 065
  7. TOPALGIC [Concomitant]
     Route: 065
  8. BI-PROFENID [Concomitant]
     Route: 065
  9. ALPRAZOLAM [Concomitant]
     Route: 065
  10. ALTEIS [Concomitant]
     Route: 065
  11. IMOVANE [Concomitant]
     Route: 065

REACTIONS (3)
  - Tunnel vision [Not Recovered/Not Resolved]
  - Headache [Not Recovered/Not Resolved]
  - Colour blindness [Not Recovered/Not Resolved]
